FAERS Safety Report 7033838-5 (Version None)
Quarter: 2010Q4

REPORT INFORMATION
  Report Type: 
  Country: None (occurrence: None)
  Receive Date: 20101007
  Receipt Date: 20100930
  Transmission Date: 20110411
  Serious: Yes (Other)
  Sender: FDA-Public Use
  Company Number: PHHY2010US45809

PATIENT
  Sex: Female

DRUGS (4)
  1. EXTAVIA [Suspect]
     Indication: MULTIPLE SCLEROSIS
     Dosage: 0.25 MG, QOD
     Route: 058
     Dates: start: 20100220
  2. BENADRYL ^ACHE^ [Concomitant]
     Dosage: UNK, BEFORE INJECTIONS
  3. INSULIN [Concomitant]
     Dosage: 4 TIMES A DAY
  4. ANTIHYPERTENSIVES [Concomitant]

REACTIONS (6)
  - EYE SWELLING [None]
  - FALL [None]
  - HYPOAESTHESIA [None]
  - HYSTERECTOMY [None]
  - JOINT INJURY [None]
  - MULTIPLE SCLEROSIS RELAPSE [None]
